FAERS Safety Report 6064958-X (Version None)
Quarter: 2009Q1

REPORT INFORMATION
  Report Type: 
  Country: None (occurrence: None)
  Receive Date: 20090204
  Receipt Date: 20090127
  Transmission Date: 20090719
  Serious: Yes (Disabling)
  Sender: FDA-Public Use
  Company Number: DE-ABBOTT-09P-062-0500357-00

PATIENT
  Age: 54 Year
  Sex: Female

DRUGS (7)
  1. HUMIRA [Suspect]
     Indication: DRUG USE FOR UNKNOWN INDICATION
     Dates: start: 20060201
  2. METHOTREXATE [Suspect]
     Indication: DRUG USE FOR UNKNOWN INDICATION
  3. LEFLUNOMIDE [Suspect]
     Indication: DRUG USE FOR UNKNOWN INDICATION
  4. INFLIXIMAB [Concomitant]
     Indication: DRUG USE FOR UNKNOWN INDICATION
     Dates: start: 20010701, end: 20020101
  5. INFLIXIMAB [Concomitant]
     Dates: start: 20020101, end: 20030101
  6. INFLIXIMAB [Concomitant]
     Dates: start: 20030101, end: 20040101
  7. INFLIXIMAB [Concomitant]
     Dates: start: 20040101, end: 20051201

REACTIONS (1)
  - KNEE ARTHROPLASTY [None]
